FAERS Safety Report 18143011 (Version 1)
Quarter: 2020Q3

REPORT INFORMATION
  Report Type: Other
  Country: TR (occurrence: TR)
  Receive Date: 20200813
  Receipt Date: 20200813
  Transmission Date: 20201103
  Serious: Yes (Other)
  Sender: FDA-Public Use
  Company Number: TR-ROCHE-2656679

PATIENT

DRUGS (2)
  1. TOCILIZUMAB. [Suspect]
     Active Substance: TOCILIZUMAB
     Indication: COVID-19
     Route: 065
  2. TOCILIZUMAB. [Suspect]
     Active Substance: TOCILIZUMAB
     Indication: COVID-19 PNEUMONIA

REACTIONS (7)
  - Pneumonia [Unknown]
  - Corynebacterium infection [Unknown]
  - Bacterial sepsis [Unknown]
  - Candida infection [Unknown]
  - Bacterial infection [Unknown]
  - Intentional product use issue [Unknown]
  - Off label use [Unknown]
